FAERS Safety Report 5102275-2 (Version None)
Quarter: 2006Q3

REPORT INFORMATION
  Report Type: 
  Country: None (occurrence: None)
  Receive Date: 20060912
  Receipt Date: 20060828
  Transmission Date: 20061208
  Serious: Yes (Hospitalization)
  Sender: FDA-Public Use
  Company Number: FRWYE879308SEP06

PATIENT
  Sex: Male

DRUGS (2)
  1. ENBREL [Suspect]
     Indication: PSORIASIS
     Route: 058
     Dates: start: 20050531, end: 20051014
  2. METHOTREXATE [Interacting]
     Indication: PSORIASIS
     Dates: start: 20050819, end: 20051014

REACTIONS (3)
  - BRONCHITIS [None]
  - DRUG INTERACTION [None]
  - PANCYTOPENIA [None]
